FAERS Safety Report 9486275 (Version 3)
Quarter: 2013Q3

REPORT INFORMATION
  Report Type: Spontaneous
  Country: US (occurrence: US)
  Receive Date: 20130829
  Receipt Date: 20130909
  Transmission Date: 20140515
  Serious: No
  Sender: FDA-Public Use
  Company Number: US-009507513-1308USA013719

PATIENT
  Sex: Male

DRUGS (1)
  1. COPPERTONE KIDS PURE AND SIMPLE SPF-50 [Suspect]
     Indication: PRODUCT USED FOR UNKNOWN INDICATION
     Dosage: UNK, UNKNOWN
     Route: 061
     Dates: start: 20130809

REACTIONS (2)
  - Pruritus [Unknown]
  - Drug ineffective [Unknown]
